FAERS Safety Report 4978422-X (Version None)
Quarter: 2006Q1

REPORT INFORMATION
  Report Type: 
  Country: None (occurrence: None)
  Receive Date: 20060227
  Receipt Date: 20050222
  Transmission Date: 20060701
  Serious: Yes (Hospitalization, Other)
  Sender: FDA-Public Use
  Company Number: WAES 0502USA02701

PATIENT
  Age: 70 Year
  Sex: Female

DRUGS (1)
  1. ZOCOR [Suspect]
     Indication: DYSLIPIDAEMIA
     Dosage: 40 MG/KDAILY/PO; 80 MG/DAILY/PO
     Route: 048

REACTIONS (1)
  - HEPATIC ENZYME INCREASED [None]
